FAERS Safety Report 24526971 (Version 1)
Quarter: 2024Q4

REPORT INFORMATION
  Report Type: Spontaneous
  Country: FR (occurrence: FR)
  Receive Date: 20241021
  Receipt Date: 20241021
  Transmission Date: 20250114
  Serious: Yes (Hospitalization)
  Sender: ACCORD
  Company Number: None

PATIENT
  Age: 81 Year
  Sex: Male
  Weight: 60 kg

DRUGS (9)
  1. OXALIPLATIN [Suspect]
     Active Substance: OXALIPLATIN
     Indication: Adenocarcinoma pancreas
     Dosage: STRENGTH: 5 MG/ML
     Dates: start: 20240918, end: 20240918
  2. FLUOROURACIL [Concomitant]
     Active Substance: FLUOROURACIL
  3. OXAZEPAM [Concomitant]
     Active Substance: OXAZEPAM
  4. HUMALOG [Concomitant]
     Active Substance: INSULIN LISPRO
  5. CREON [Concomitant]
     Active Substance: PANCRELIPASE AMYLASE\PANCRELIPASE LIPASE\PANCRELIPASE PROTEASE
  6. FUNGIZONE [Concomitant]
     Active Substance: AMPHOTERICIN B
  7. LEVOLEUCOVORIN CALCIUM [Concomitant]
     Active Substance: LEVOLEUCOVORIN CALCIUM
  8. LANTUS [Concomitant]
     Active Substance: INSULIN GLARGINE
  9. EMEND [Concomitant]
     Active Substance: APREPITANT

REACTIONS (1)
  - Anaphylactoid reaction [Recovered/Resolved]

NARRATIVE: CASE EVENT DATE: 20240918
